FAERS Safety Report 22932820 (Version 2)
Quarter: 2023Q4

REPORT INFORMATION
  Report Type: Spontaneous
  Country: US (occurrence: None)
  Receive Date: 20230912
  Receipt Date: 20231101
  Transmission Date: 20240109
  Serious: No
  Sender: FDA-Public Use
  Company Number: 2023A201017

PATIENT

DRUGS (1)
  1. BYDUREON BCISE [Suspect]
     Active Substance: EXENATIDE
     Dosage: 2.0MG UNKNOWN
     Route: 058

REACTIONS (6)
  - Injection site haemorrhage [Unknown]
  - Frustration tolerance decreased [Unknown]
  - Injection site indentation [Unknown]
  - Glycosylated haemoglobin increased [Unknown]
  - Drug delivery system issue [Unknown]
  - Device leakage [Unknown]
